FAERS Safety Report 4844534-4 (Version None)
Quarter: 2005Q4

REPORT INFORMATION
  Report Type: 
  Country: None (occurrence: None)
  Receive Date: 20051130
  Receipt Date: 20051130
  Transmission Date: 20060501
  Serious: Yes (Other)
  Sender: FDA-Public Use
  Company Number: None

PATIENT
  Age: 42 Year
  Sex: Male
  Weight: 97.5234 kg

DRUGS (2)
  1. CYMBALTA [Suspect]
     Indication: DEPRESSION
     Dosage: 60MG  1 / DAY PO
     Route: 048
     Dates: start: 20050115, end: 20051108
  2. CYMBALTA [Suspect]
     Indication: PANIC ATTACK
     Dosage: 60MG  1 / DAY PO
     Route: 048
     Dates: start: 20050115, end: 20051108

REACTIONS (24)
  - ABDOMINAL DISTENSION [None]
  - ABDOMINAL TENDERNESS [None]
  - ACNE [None]
  - ANGER [None]
  - ARTHRALGIA [None]
  - CONDITION AGGRAVATED [None]
  - DISTURBANCE IN ATTENTION [None]
  - DRUG WITHDRAWAL SYNDROME [None]
  - EYE MOVEMENT DISORDER [None]
  - FAMILY STRESS [None]
  - FEELING ABNORMAL [None]
  - GALLBLADDER DISORDER [None]
  - INFLUENZA LIKE ILLNESS [None]
  - IRRITABILITY [None]
  - LIVER DISORDER [None]
  - MEMORY IMPAIRMENT [None]
  - MOTION SICKNESS [None]
  - NERVOUS SYSTEM DISORDER [None]
  - SENSORY DISTURBANCE [None]
  - SKIN DISORDER [None]
  - STRESS [None]
  - TENSION [None]
  - TINNITUS [None]
  - VISUAL ACUITY REDUCED [None]
